FAERS Safety Report 11256930 (Version 1)
Quarter: 2015Q3

REPORT INFORMATION
  Report Type: Spontaneous
  Country: US (occurrence: US)
  Receive Date: 20150709
  Receipt Date: 20150709
  Transmission Date: 20151125
  Serious: No
  Sender: FDA-Public Use
  Company Number: US-PURDUE-USA-2015-0120133

PATIENT
  Age: 70 Year
  Sex: Female

DRUGS (3)
  1. BUTRANS [Suspect]
     Active Substance: BUPRENORPHINE
     Indication: CYSTITIS INTERSTITIAL
     Dosage: UNK
     Route: 062
     Dates: start: 2014
  2. BUTRANS [Suspect]
     Active Substance: BUPRENORPHINE
     Indication: PAIN
     Dosage: 10 MCG/HR, WEEKLY
     Route: 062
     Dates: start: 20150106, end: 20150106
  3. LYRICA [Concomitant]
     Active Substance: PREGABALIN
     Indication: PAIN
     Route: 065

REACTIONS (4)
  - Feeling jittery [Recovered/Resolved]
  - Constipation [Unknown]
  - Wrong technique in product usage process [Unknown]
  - Depression [Unknown]

NARRATIVE: CASE EVENT DATE: 20150106
